FAERS Safety Report 5292042-1 (Version None)
Quarter: 2007Q2

REPORT INFORMATION
  Report Type: 
  Country: None (occurrence: None)
  Receive Date: 20070406
  Receipt Date: 20070406
  Transmission Date: 20071010
  Serious: No
  Sender: FDA-Public Use
  Company Number: None

PATIENT
  Age: 6 Year
  Sex: Male
  Weight: 20.4119 kg

DRUGS (1)
  1. RISPERDONE [Suspect]
     Dosage: 0.5 ML ONCE DAILY
     Dates: start: 20060217, end: 20061210

REACTIONS (1)
  - DYSKINESIA [None]
